FAERS Safety Report 4951938-8 (Version None)
Quarter: 2006Q1

REPORT INFORMATION
  Report Type: 
  Country: None (occurrence: None)
  Receive Date: 20060320
  Receipt Date: 20060307
  Transmission Date: 20060701
  Serious: Yes (Hospitalization)
  Sender: FDA-Public Use
  Company Number: 2006024024

PATIENT
  Age: 37 Year
  Sex: Male
  Weight: 72 kg

DRUGS (1)
  1. CELEBREX [Suspect]
     Indication: CERVICOBRACHIAL SYNDROME
     Dosage: 200 MG (1 IN 1 D), ORAL
     Route: 048
     Dates: start: 20051117, end: 20051117

REACTIONS (8)
  - ABDOMINAL PAIN UPPER [None]
  - BRADYCARDIA [None]
  - BUNDLE BRANCH BLOCK RIGHT [None]
  - CARDIAC DISORDER [None]
  - COLD SWEAT [None]
  - MYOCARDIAL ISCHAEMIA [None]
  - NAUSEA [None]
  - STOMACH DISCOMFORT [None]
